FAERS Safety Report 4496775-6 (Version None)
Quarter: 2004Q4

REPORT INFORMATION
  Report Type: 
  Country: None (occurrence: None)
  Receive Date: 20041109
  Receipt Date: 20041101
  Transmission Date: 20050328
  Serious: Yes (Death, Hospitalization)
  Sender: FDA-Public Use
  Company Number: US-MERCK-0411USA00164

PATIENT
  Age: 59 Year
  Sex: Female

DRUGS (9)
  1. VIOXX [Suspect]
     Indication: OSTEOPOROSIS
     Route: 048
     Dates: start: 20030301, end: 20030802
  2. PAXIL [Concomitant]
     Route: 065
  3. PREMARIN [Concomitant]
     Route: 065
  4. FLUOCINONIDE [Concomitant]
     Route: 065
  5. MACROBID [Concomitant]
     Route: 065
  6. AMOXICILLIN [Concomitant]
     Route: 065
  7. SMZ-TMP [Concomitant]
     Route: 065
  8. Q-BID LA [Concomitant]
     Route: 065
  9. CLONAZEPAM [Concomitant]
     Route: 065

REACTIONS (1)
  - ANEURYSM [None]
